FAERS Safety Report 6097009-1 (Version None)
Quarter: 2009Q1

REPORT INFORMATION
  Report Type: 
  Country: None (occurrence: None)
  Receive Date: 20090227
  Receipt Date: 20090218
  Transmission Date: 20090719
  Serious: Yes (Other)
  Sender: FDA-Public Use
  Company Number: PHHY2009JP06092

PATIENT
  Sex: Male
  Weight: 56 kg

DRUGS (1)
  1. DIOVAN [Suspect]
     Dosage: 80 MG, ONCE DAILY
     Route: 048
     Dates: start: 20080207, end: 20080320

REACTIONS (1)
  - LUNG NEOPLASM [None]
